FAERS Safety Report 20992040 (Version 1)
Quarter: 2022Q2

REPORT INFORMATION
  Report Type: Spontaneous
  Country: US (occurrence: None)
  Receive Date: 20220621
  Receipt Date: 20220621
  Transmission Date: 20220721
  Serious: No
  Sender: FDA-Public Use
  Company Number: None

PATIENT
  Age: 57 Year
  Sex: Female
  Weight: 77.56 kg

DRUGS (19)
  1. IBRANCE [Suspect]
     Active Substance: PALBOCICLIB
     Indication: Breast cancer female
     Dosage: OTHER FREQUENCY : 21D OF 28;?
     Route: 048
     Dates: start: 20201008, end: 20220621
  2. ABILIFY [Concomitant]
     Active Substance: ARIPIPRAZOLE
  3. ARMOUR THYROID [Concomitant]
     Active Substance: THYROID, PORCINE
  4. HERBALS [Concomitant]
     Active Substance: HERBALS
  5. ATIVAN [Concomitant]
     Active Substance: LORAZEPAM
  6. FLUTICASONE [Concomitant]
     Active Substance: FLUTICASONE
  7. TEA [Concomitant]
     Active Substance: TEA LEAF
  8. HERBALS [Concomitant]
     Active Substance: HERBALS
  9. EXPEC [Concomitant]
  10. LYSINE [Concomitant]
     Active Substance: LYSINE
  11. LEVOCETIRIZINE [Concomitant]
     Active Substance: LEVOCETIRIZINE
  12. MONTELUKAST [Concomitant]
     Active Substance: MONTELUKAST SODIUM
  13. VITAMINS [Concomitant]
     Active Substance: VITAMINS
  14. FISH OIL [Concomitant]
     Active Substance: FISH OIL
  15. PROBIOTICS NOS [Concomitant]
     Active Substance: PROBIOTICS NOS
  16. SINGULAIR [Concomitant]
     Active Substance: MONTELUKAST SODIUM
  17. TAMOXIFEN [Concomitant]
     Active Substance: TAMOXIFEN
  18. TRAMADOL [Concomitant]
     Active Substance: TRAMADOL
  19. VENLAFAXINE [Concomitant]
     Active Substance: VENLAFAXINE HYDROCHLORIDE

REACTIONS (1)
  - Disease progression [None]
